FAERS Safety Report 10643276 (Version 1)
Quarter: 2014Q4

REPORT INFORMATION
  Report Type: Report from Study
  Country: US (occurrence: None)
  Receive Date: 20141128
  Receipt Date: 20141128
  Transmission Date: 20150529
  Serious: Yes (Hospitalization)
  Sender: FDA-Public Use
  Company Number: 2379412

PATIENT
  Age: 64 Year
  Sex: Male
  Weight: 109 kg

DRUGS (3)
  1. CYCLOPHOSPHAMIDE. [Suspect]
     Active Substance: CYCLOPHOSPHAMIDE
     Indication: CHRONIC LYMPHOCYTIC LEUKAEMIA
     Dosage: TOTAL DOSE 1357 MG, NOT REPORTED, CYCLICAL,
     Dates: start: 20120924, end: 20120924
  2. NIPENT [Suspect]
     Active Substance: PENTOSTATIN
     Indication: CHRONIC LYMPHOCYTIC LEUKAEMIA
     Dosage: TOTAL DOSE 9MG, NOT REPROTED CYCLICAL
     Dates: start: 20130924
  3. RITUXIMAB [Suspect]
     Active Substance: RITUXIMAB
     Indication: CHRONIC LYMPHOCYTIC LEUKAEMIA
     Dosage: TOTAL DOSE 100 MG,  NOT REPORTED. CYCLICAL
     Dates: start: 20120924, end: 20120924

REACTIONS (1)
  - Tumour lysis syndrome [None]

NARRATIVE: CASE EVENT DATE: 20120928
